FAERS Safety Report 25700249 (Version 1)
Quarter: 2025Q3

REPORT INFORMATION
  Report Type: Spontaneous
  Country: US (occurrence: US)
  Receive Date: 20250819
  Receipt Date: 20250819
  Transmission Date: 20251020
  Serious: No
  Sender: ARCUTIS
  Company Number: US-ARCUTIS BIOTHERAPEUTICS INC-2025AER000555

PATIENT

DRUGS (2)
  1. ZORYVE [Suspect]
     Active Substance: ROFLUMILAST
     Indication: Psoriasis
     Dosage: UNK, QD
     Route: 061
     Dates: start: 202405
  2. ELIDEL [Concomitant]
     Active Substance: PIMECROLIMUS
     Indication: Psoriasis

REACTIONS (1)
  - Insomnia [Not Recovered/Not Resolved]
